FAERS Safety Report 9893128 (Version 2)
Quarter: 2014Q1

REPORT INFORMATION
  Report Type: Spontaneous
  Country: JP (occurrence: JP)
  Receive Date: 20140213
  Receipt Date: 20140213
  Transmission Date: 20141002
  Serious: Yes (Life-Threatening, Hospitalization, Other)
  Sender: FDA-Public Use
  Company Number: JP-ROCHE-1289873

PATIENT
  Age: 15 Year
  Sex: Male
  Weight: 40 kg

DRUGS (11)
  1. ACTEMRA [Suspect]
     Indication: JUVENILE IDIOPATHIC ARTHRITIS
     Route: 041
     Dates: start: 20121116, end: 2013
  2. ACTEMRA [Suspect]
     Route: 041
     Dates: start: 20130424, end: 2013
  3. ACTEMRA [Suspect]
     Route: 041
     Dates: start: 20130826, end: 20130909
  4. RHEUMATREX [Suspect]
     Indication: JUVENILE IDIOPATHIC ARTHRITIS
     Route: 048
     Dates: start: 20130819, end: 20130928
  5. SANDIMMUN [Suspect]
     Indication: HISTIOCYTOSIS HAEMATOPHAGIC
     Route: 065
     Dates: start: 20131003, end: 20131017
  6. NAIXAN [Concomitant]
     Route: 048
     Dates: start: 20101207, end: 20131002
  7. PREDONINE [Concomitant]
     Indication: JUVENILE IDIOPATHIC ARTHRITIS
     Dosage: INCREASE AND DECREASE FROM 10MG
     Route: 048
     Dates: start: 20101210
  8. COLCHICINE [Concomitant]
     Indication: JUVENILE IDIOPATHIC ARTHRITIS
     Route: 048
     Dates: start: 20130610, end: 20130826
  9. FOLIAMIN [Concomitant]
     Indication: PROPHYLAXIS
     Route: 048
     Dates: start: 20130819, end: 20130928
  10. PREDNISOLONE [Concomitant]
     Indication: JUVENILE IDIOPATHIC ARTHRITIS
     Route: 048
  11. CICLOSPORIN [Concomitant]
     Indication: JUVENILE IDIOPATHIC ARTHRITIS
     Route: 065

REACTIONS (4)
  - Histiocytosis haematophagic [Recovering/Resolving]
  - Small intestinal haemorrhage [Recovered/Resolved]
  - Cytomegalovirus infection [Unknown]
  - Arthralgia [Unknown]
